FAERS Safety Report 24173040 (Version 3)
Quarter: 2024Q3

REPORT INFORMATION
  Report Type: Spontaneous
  Country: JP (occurrence: JP)
  Receive Date: 20240805
  Receipt Date: 20240809
  Transmission Date: 20241016
  Serious: No
  Sender: PFIZER
  Company Number: JP-PFIZER INC-PV202400050928

PATIENT

DRUGS (1)
  1. ENBREL [Suspect]
     Active Substance: BENZYL ALCOHOL\ETANERCEPT

REACTIONS (2)
  - Device delivery system issue [Unknown]
  - Needle issue [Unknown]

NARRATIVE: CASE EVENT DATE: 20240416
